FAERS Safety Report 21134744 (Version 1)
Quarter: 2022Q3

REPORT INFORMATION
  Report Type: Report from Study
  Country: US (occurrence: US)
  Receive Date: 20220727
  Receipt Date: 20220727
  Transmission Date: 20221027
  Serious: Yes (Other)
  Sender: FDA-Public Use
  Company Number: US-ABBVIE-22K-163-4480614-00

PATIENT
  Sex: Male

DRUGS (4)
  1. RINVOQ [Suspect]
     Active Substance: UPADACITINIB
     Indication: Rheumatoid arthritis
     Route: 048
  2. COVID-19 VACCINE [Concomitant]
     Indication: COVID-19 immunisation
     Dosage: JOHNSON + JOHNSON
     Dates: start: 20210307, end: 20210307
  3. COVID-19 VACCINE [Concomitant]
     Dates: start: 2021, end: 2021
  4. COVID-19 VACCINE [Concomitant]
     Dates: start: 202110, end: 202110

REACTIONS (8)
  - Traumatic lung injury [Unknown]
  - Pain in extremity [Recovered/Resolved]
  - Pneumonia legionella [Unknown]
  - Pneumonia [Unknown]
  - Oxygen saturation decreased [Unknown]
  - Asthma [Unknown]
  - Blood pressure abnormal [Unknown]
  - Arthralgia [Recovered/Resolved]
